FAERS Safety Report 16750156 (Version 2)
Quarter: 2019Q3

REPORT INFORMATION
  Report Type: Spontaneous
  Country: US (occurrence: US)
  Receive Date: 20190828
  Receipt Date: 20190830
  Transmission Date: 20191005
  Serious: No
  Sender: FDA-Public Use
  Company Number: US-PFIZER INC-2019362594

PATIENT
  Age: 64 Year
  Sex: Female

DRUGS (5)
  1. NICOTROL [Suspect]
     Active Substance: NICOTINE
     Indication: SMOKING CESSATION THERAPY
     Dosage: 10 MG, UNK
  2. TYLENOL WITH CODEINE [Interacting]
     Active Substance: ACETAMINOPHEN\CODEINE PHOSPHATE
     Dosage: UNK
  3. ACETAMINOPHEN. [Interacting]
     Active Substance: ACETAMINOPHEN
     Dosage: UNK
  4. NICOTROL [Interacting]
     Active Substance: NICOTINE
     Dosage: UNK, (I DID 3 NASAL SPRAYS I THINK, 3 NASAL SPRAYS THROUGH THIS MORNING AND 1 WHEN I CAME BACK)
  5. NICOTROL [Interacting]
     Active Substance: NICOTINE
     Dosage: UNK, 2X/DAY, (I HAD 2 SPRAY THIS MORNING)

REACTIONS (9)
  - Dizziness [Unknown]
  - Peripheral swelling [Unknown]
  - Decreased appetite [Unknown]
  - Pain in extremity [Recovered/Resolved]
  - Headache [Unknown]
  - Joint swelling [Recovered/Resolved]
  - Gait inability [Unknown]
  - Labelled drug-drug interaction medication error [Unknown]
  - Malaise [Unknown]
